FAERS Safety Report 13063559 (Version 1)
Quarter: 2016Q4

REPORT INFORMATION
  Report Type: Report from Study
  Country: NL (occurrence: NL)
  Receive Date: 20161227
  Receipt Date: 20161227
  Transmission Date: 20170207
  Serious: Yes (Other)
  Sender: FDA-Public Use
  Company Number: NL-AMGEN-NLDSL2016182375

PATIENT
  Age: 70 Year
  Sex: Female

DRUGS (16)
  1. OXYCODON [Concomitant]
     Active Substance: OXYCODONE
     Dosage: 5 MG, UNK
  2. PARACETAMOL [Concomitant]
     Active Substance: ACETAMINOPHEN
     Dosage: 500 MG, UNK
  3. MACROGOL [Concomitant]
     Active Substance: POLYETHYLENE GLYCOLS
     Dosage: (SALT POWDER FOR DRINK)
     Route: 048
  4. XGEVA [Suspect]
     Active Substance: DENOSUMAB
     Indication: PRODUCT USED FOR UNKNOWN INDICATION
     Dosage: 120 MG, Q4WK
     Route: 058
     Dates: start: 20160216
  5. FERROFUMARAAT [Concomitant]
     Dosage: 200 MG, UNK
  6. CYANOCOBALAMINE [Concomitant]
     Active Substance: CYANOCOBALAMIN
     Dosage: 1000 MUG, UNK
  7. ETORICOXIB [Concomitant]
     Active Substance: ETORICOXIB
     Dosage: 30 MG, UNK
  8. OXYCODON [Concomitant]
     Active Substance: OXYCODONE
     Dosage: 5 UNK,(MGA) UNK
  9. PREGABALINE [Concomitant]
     Active Substance: PREGABALIN
     Dosage: 150 MG, UNK
  10. ANASTROZOL [Concomitant]
     Active Substance: ANASTROZOLE
     Dosage: 1 MG, UNK
  11. CALCIUMCARBONAAT [Concomitant]
     Dosage: 1.25 UNK,(G/440IE,500MG CA)UNK
  12. ARIPIPRAZOL [Concomitant]
     Active Substance: ARIPIPRAZOLE
     Dosage: 15 MG, UNK
  13. DULOXETINE. [Concomitant]
     Active Substance: DULOXETINE
     Dosage: 30 MG, UNK
  14. FOLIUMZUUR [Concomitant]
     Active Substance: FOLIC ACID
     Dosage: 0.5 MG, UNK
  15. FENTANYL. [Concomitant]
     Active Substance: FENTANYL
     Dosage: 12 UNK,(UG/UUR) UNK
  16. OMEPRAZOL [Concomitant]
     Active Substance: OMEPRAZOLE
     Dosage: 40 MG, UNK

REACTIONS (1)
  - Lower limb fracture [Unknown]
